FAERS Safety Report 8456876-4 (Version None)
Quarter: 2012Q2

REPORT INFORMATION
  Report Type: 
  Country: None (occurrence: None)
  Receive Date: 20120621
  Receipt Date: 20120619
  Transmission Date: 20120825
  Serious: No
  Sender: FDA-Public Use
  Company Number: US-B.I. PHARMACEUTICALS,INC./RIDGEFIELD-2012-BP-14085BP

PATIENT
  Age: 69 Year
  Sex: Female

DRUGS (5)
  1. TRADJENTA [Suspect]
     Indication: TYPE 2 DIABETES MELLITUS
     Dosage: 2.5 MG
     Route: 048
     Dates: start: 20120528, end: 20120604
  2. MEDICATION NOT FURTHER SPECIFIED [Concomitant]
     Indication: HYPERTENSION
     Route: 048
  3. MEDICATION NOT FURTHER SPECIFIED [Concomitant]
     Indication: HORMONE REPLACEMENT THERAPY
     Route: 048
  4. MEDICATION NOT FURTHER SPECIFIED [Concomitant]
     Indication: HYPOTHYROIDISM
     Route: 048
  5. TRADJENTA [Suspect]
     Dosage: 5 MG
     Route: 048
     Dates: start: 20120604

REACTIONS (2)
  - INCORRECT DOSE ADMINISTERED [None]
  - WAIST CIRCUMFERENCE INCREASED [None]
